FAERS Safety Report 5748826-6 (Version None)
Quarter: 2008Q2

REPORT INFORMATION
  Report Type: 
  Country: None (occurrence: None)
  Receive Date: 20080522
  Receipt Date: 20080505
  Transmission Date: 20081010
  Serious: Yes (Hospitalization)
  Sender: FDA-Public Use
  Company Number: 2008AL003412

PATIENT
  Age: 67 Year
  Sex: Female
  Weight: 77.1115 kg

DRUGS (5)
  1. DIGOXIN [Suspect]
     Indication: CARDIAC FAILURE CONGESTIVE
     Dosage: 0.25 MG, DAILY, PO
     Route: 048
  2. COREG [Concomitant]
  3. LISINOPRIL [Concomitant]
  4. ALDACTONE [Concomitant]
  5. INSULIN [Concomitant]

REACTIONS (9)
  - ASTHENIA [None]
  - BLOOD INSULIN DECREASED [None]
  - DRUG TOXICITY [None]
  - DYSPNOEA [None]
  - FATIGUE [None]
  - HEADACHE [None]
  - HEART RATE DECREASED [None]
  - MOVEMENT DISORDER [None]
  - NAUSEA [None]
